FAERS Safety Report 7003279-5 (Version None)
Quarter: 2010Q3

REPORT INFORMATION
  Report Type: 
  Country: None (occurrence: None)
  Receive Date: 20100920
  Receipt Date: 20100908
  Transmission Date: 20110219
  Serious: Yes (Hospitalization)
  Sender: FDA-Public Use
  Company Number: CA-PFIZER INC-2010084726

PATIENT
  Age: 46 Year
  Sex: Female
  Weight: 64 kg

DRUGS (8)
  1. SUNITINIB MALATE [Suspect]
     Indication: PHAEOCHROMOCYTOMA
     Dosage: 37.5 MG, ONE TIME PER DAY, 4 WEEKS ON AND 2 WEEKS OFF
     Dates: start: 20100610, end: 20100705
  2. SUNITINIB MALATE [Suspect]
     Dosage: 25 MG, ONE TIME PER DAY FOR 4 WEEKS AND THEN 2 WEEKS OFF
     Dates: start: 20100723
  3. PERCOCET [Concomitant]
     Indication: PAIN
     Dosage: UNK
     Route: 048
     Dates: start: 20100301
  4. FRAGMIN [Concomitant]
     Indication: COAGULOPATHY
     Dosage: UNK
     Route: 058
     Dates: start: 20100101
  5. NOVO-PRAZIN [Concomitant]
     Indication: HYPERTENSION
     Dosage: UNK
     Route: 048
     Dates: start: 20091001
  6. LISINOPRIL [Concomitant]
     Indication: HYPERTENSION
     Dosage: UNK
     Route: 048
     Dates: start: 20100506
  7. STEMETIL ^AVENTIS PHARMA^ [Concomitant]
     Indication: NAUSEA
     Dosage: UNK
     Route: 048
     Dates: start: 20100625, end: 20100707
  8. STEMETIL ^AVENTIS PHARMA^ [Concomitant]
     Indication: VOMITING

REACTIONS (2)
  - DEHYDRATION [None]
  - VOMITING [None]
